FAERS Safety Report 8505152-X (Version None)
Quarter: 2012Q2

REPORT INFORMATION
  Report Type: 
  Country: None (occurrence: None)
  Receive Date: 20120405
  Receipt Date: 20100719
  Transmission Date: 20120825
  Serious: Yes (Other)
  Sender: FDA-Public Use
  Company Number: PHHY2010US39651

PATIENT
  Age: 74 Year
  Sex: Female

DRUGS (7)
  1. RECLAST [Suspect]
     Indication: OSTEOPOROSIS
     Dosage: 5 MG ONCE PER YEAR, INTRAVENOUS
     Route: 042
     Dates: start: 20100613
  2. ACIPHEX [Concomitant]
  3. FORTEO [Concomitant]
  4. ASPIRIN [Concomitant]
  5. OXYCODONE HCL [Concomitant]
  6. SINTHROID (LEVOTHYROXINE SODIUM) [Concomitant]
  7. SERAX [Concomitant]

REACTIONS (11)
  - MALAISE [None]
  - ARTHRITIS [None]
  - APHAGIA [None]
  - FEELING ABNORMAL [None]
  - HEADACHE [None]
  - TOOTHACHE [None]
  - NAUSEA [None]
  - PAIN IN JAW [None]
  - ARTHRALGIA [None]
  - DIARRHOEA [None]
  - VOMITING [None]
